FAERS Safety Report 13792352 (Version 1)
Quarter: 2017Q3

REPORT INFORMATION
  Report Type: Spontaneous
  Country: GB (occurrence: GB)
  Receive Date: 20170726
  Receipt Date: 20170726
  Transmission Date: 20171127
  Serious: Yes (Life-Threatening, Hospitalization)
  Sender: FDA-Public Use
  Company Number: GB-PFIZER INC-1423127

PATIENT
  Age: 49 Year
  Sex: Female

DRUGS (1)
  1. METHOTREXATE SODIUM. [Suspect]
     Active Substance: METHOTREXATE SODIUM
     Indication: RHEUMATOID ARTHRITIS
     Dosage: UNK
     Route: 048
     Dates: start: 201110

REACTIONS (4)
  - Dyspnoea [Recovered/Resolved]
  - Syncope [Recovered/Resolved]
  - Cough [Recovered/Resolved]
  - Respiratory distress [Recovered/Resolved]
